FAERS Safety Report 16078523 (Version 2)
Quarter: 2019Q2

REPORT INFORMATION
  Report Type: Report from Study
  Country: US (occurrence: US)
  Receive Date: 20190315
  Receipt Date: 20190404
  Transmission Date: 20190711
  Serious: Yes (Hospitalization)
  Sender: FDA-Public Use
  Company Number: US-PFIZER INC-2019103569

PATIENT
  Age: 5 Year
  Sex: Male
  Weight: 19.9 kg

DRUGS (6)
  1. VINCRISTINE SULFATE. [Suspect]
     Active Substance: VINCRISTINE SULFATE
     Indication: EMBRYONAL RHABDOMYOSARCOMA
     Dosage: 1.5MG/M2, IV OVER 1 MINUTE OR INFUSION VIA MINIBAG, CYCLIC
     Route: 042
     Dates: start: 20180614
  2. TEMSIROLIMUS. [Suspect]
     Active Substance: TEMSIROLIMUS
     Indication: EMBRYONAL RHABDOMYOSARCOMA
     Dosage: 10MG/M2, OVER 30-60 MINUTES, CYCLIC (DAYS 1 AND 8 FOR CYCLE 1-4; 8-12 AND DAY 1 ON CYCLE 13)
     Route: 042
     Dates: start: 20180614
  3. CYCLOPHOSPHAMIDE. [Suspect]
     Active Substance: CYCLOPHOSPHAMIDE
     Indication: EMBRYONAL RHABDOMYOSARCOMA
     Dosage: 1200MG/M2, OVER 60 MINUTES, CYCLIC (DAY 1 OF CYCLES 1, 3, 5, 8, 10, 12 AND 14)
     Route: 042
     Dates: start: 20180614
  4. CAMPTOSAR [Suspect]
     Active Substance: IRINOTECAN HYDROCHLORIDE
     Indication: EMBRYONAL RHABDOMYOSARCOMA
     Dosage: 50MG/M2, OVER 90 MINUTES, CYCLIC (DAYS 1-5 OF CYCLES 2, 4, 6, 7, 9, 11 AND 13)
     Route: 042
     Dates: start: 2018
  5. BACTRIM [Concomitant]
     Active Substance: SULFAMETHOXAZOLE\TRIMETHOPRIM
     Indication: ANTIFUNGAL PROPHYLAXIS
     Dosage: 100 MG, QMONWEDFFRI
     Route: 048
     Dates: start: 20180614
  6. DACTINOMYCIN [Suspect]
     Active Substance: DACTINOMYCIN
     Indication: EMBRYONAL RHABDOMYOSARCOMA
     Dosage: 0.05MG/KG , OVER 1-5 MINUTES, CYCLIC (DAY 1 OF CYCLES 1, 3, 5, 8, 10, 12 AND 14)
     Route: 042
     Dates: start: 20180614

REACTIONS (3)
  - Haematuria [Recovering/Resolving]
  - Cystitis noninfective [Recovering/Resolving]
  - Penile pain [Recovering/Resolving]

NARRATIVE: CASE EVENT DATE: 20190227
